FAERS Safety Report 5929324-3 (Version None)
Quarter: 2008Q4

REPORT INFORMATION
  Report Type: 
  Country: None (occurrence: None)
  Receive Date: 20081023
  Receipt Date: 20081023
  Transmission Date: 20090506
  Serious: Yes (Other)
  Sender: FDA-Public Use
  Company Number: None

PATIENT
  Age: 53 Year
  Sex: Male
  Weight: 86.637 kg

DRUGS (13)
  1. ERBITUX [Suspect]
     Indication: PANCREATIC CARCINOMA
     Dosage: 840 MG IV (LOADING DOSE
     Route: 042
     Dates: start: 20081014
  2. OXYCONTIN [Concomitant]
  3. TYLENOL [Concomitant]
  4. ZOFRAN [Concomitant]
  5. LISINOPRIL [Concomitant]
  6. LOVASTATIN [Concomitant]
  7. PREVACID [Concomitant]
  8. REGLAN [Concomitant]
  9. ZOFRAN [Concomitant]
  10. SORBITOL [Concomitant]
  11. DECADRON [Concomitant]
  12. BENADRYL [Concomitant]
  13. GEMCITABINE [Concomitant]

REACTIONS (10)
  - ABDOMINAL PAIN [None]
  - BLOOD PRESSURE DECREASED [None]
  - CHILLS [None]
  - HEART RATE DECREASED [None]
  - HYPERHIDROSIS [None]
  - NAUSEA [None]
  - OXYGEN SATURATION DECREASED [None]
  - RASH ERYTHEMATOUS [None]
  - VENTRICULAR EXTRASYSTOLES [None]
  - VISION BLURRED [None]
